FAERS Safety Report 5393271-9 (Version None)
Quarter: 2007Q3

REPORT INFORMATION
  Report Type: 
  Country: None (occurrence: None)
  Receive Date: 20070723
  Receipt Date: 20070718
  Transmission Date: 20080115
  Serious: Yes (Death, Hospitalization, Disabling, Other)
  Sender: FDA-Public Use
  Company Number: PHHO2007VE04581

PATIENT
  Age: 71 Year
  Sex: Female

DRUGS (3)
  1. DIOVAN HCT [Suspect]
     Indication: HYPERTENSION
     Dosage: 80/12.5MG
     Route: 048
  2. GLUCOSAMINE [Concomitant]
  3. DICLOFENAC SODIUM [Concomitant]

REACTIONS (8)
  - DRUG INEFFECTIVE [None]
  - FEMUR FRACTURE [None]
  - HYPERTENSION [None]
  - HYPOGLYCAEMIA [None]
  - LOSS OF CONSCIOUSNESS [None]
  - NERVOUSNESS [None]
  - RESPIRATORY ARREST [None]
  - SOMNOLENCE [None]
